FAERS Safety Report 10242413 (Version 1)
Quarter: 2014Q2

REPORT INFORMATION
  Report Type: Spontaneous
  Country: SE (occurrence: SE)
  Receive Date: 20140617
  Receipt Date: 20140617
  Transmission Date: 20141212
  Serious: Yes (Hospitalization)
  Sender: FDA-Public Use
  Company Number: SE-PFIZER INC-2014163533

PATIENT
  Age: 52 Year
  Sex: Female

DRUGS (7)
  1. LESTID [Suspect]
  2. SPIRONOLACTONE [Suspect]
  3. DIGOXIN [Suspect]
     Dosage: UNK
  4. ENALAPRIL [Suspect]
  5. FURIX RETARD [Suspect]
  6. NEOTIGASON [Suspect]
  7. WARAN [Concomitant]
     Indication: ATRIAL FIBRILLATION

REACTIONS (2)
  - Renal failure [Unknown]
  - Diarrhoea [Unknown]
